FAERS Safety Report 7199759-2 (Version None)
Quarter: 2010Q4

REPORT INFORMATION
  Report Type: 
  Country: None (occurrence: None)
  Receive Date: 20101228
  Receipt Date: 20101223
  Transmission Date: 20110411
  Serious: Yes (Other)
  Sender: FDA-Public Use
  Company Number: CH-ROCHE-743827

PATIENT
  Sex: Male
  Weight: 82 kg

DRUGS (2)
  1. ACTEMRA [Suspect]
     Indication: RHEUMATOID ARTHRITIS
     Route: 042
     Dates: start: 20100601
  2. ASPIRIN [Concomitant]
     Dosage: FREQUENCY: D
     Route: 048

REACTIONS (1)
  - CARDIOMYOPATHY [None]
